FAERS Safety Report 8838172 (Version 2)
Quarter: 2013Q1

REPORT INFORMATION
  Report Type: Spontaneous
  Country: US (occurrence: US)
  Receive Date: 20121012
  Receipt Date: 20130314
  Transmission Date: 20140127
  Serious: No
  Sender: FDA-Public Use
  Company Number: US-PFIZER INC-2012252270

PATIENT
  Sex: 0

DRUGS (5)
  1. IRINOTECAN HCL [Suspect]
     Indication: NEOPLASM MALIGNANT
     Dosage: UNK
  2. FLUOROURACIL [Suspect]
     Indication: NEOPLASM MALIGNANT
     Dosage: UNK
  3. OXALIPLATIN [Suspect]
     Indication: NEOPLASM MALIGNANT
     Dosage: UNK
  4. AVASTIN [Suspect]
     Indication: NEOPLASM MALIGNANT
     Dosage: UNK
  5. FOLINIC ACID [Suspect]
     Indication: NEOPLASM MALIGNANT
     Dosage: UNK

REACTIONS (3)
  - Disease progression [Unknown]
  - Neoplasm malignant [Unknown]
  - Blood bilirubin abnormal [Unknown]
